FAERS Safety Report 9356415 (Version 1)
Quarter: 2013Q2

REPORT INFORMATION
  Report Type: Spontaneous
  Country: US (occurrence: US)
  Receive Date: 20130619
  Receipt Date: 20130619
  Transmission Date: 20140414
  Serious: Yes (Death, Hospitalization, Other)
  Sender: FDA-Public Use
  Company Number: US-EISAI INC-E7272-00169-SPO-US

PATIENT
  Age: 46 Year
  Sex: Female

DRUGS (8)
  1. ONTAK [Suspect]
     Indication: PERIPHERAL T-CELL LYMPHOMA UNSPECIFIED REFRACTORY
     Dosage: UNKNOWN
     Route: 065
  2. ETOPOSIDE [Suspect]
     Indication: PERIPHERAL T-CELL LYMPHOMA UNSPECIFIED REFRACTORY
     Dosage: UNKNOWN
     Route: 065
  3. ETOPOSIDE [Suspect]
     Indication: CHEMOTHERAPY
  4. IFOSFAMIDE [Suspect]
     Indication: PERIPHERAL T-CELL LYMPHOMA UNSPECIFIED REFRACTORY
     Dosage: UNKNOWN
     Route: 065
  5. CARBOPLATIN [Suspect]
     Indication: PERIPHERAL T-CELL LYMPHOMA UNSPECIFIED REFRACTORY
     Dosage: UNKNOWN
     Route: 065
  6. CARMUSTINE [Suspect]
     Indication: CHEMOTHERAPY
     Dosage: UNKNOWN
     Route: 065
  7. ARA-C [Suspect]
     Indication: CHEMOTHERAPY
     Dosage: UNKNOWN
     Route: 065
  8. MELPHALAN [Suspect]
     Indication: CHEMOTHERAPY
     Dosage: UNKNOWN
     Route: 065

REACTIONS (15)
  - Enterococcal sepsis [Fatal]
  - Multi-organ failure [Fatal]
  - Graft versus host disease [Not Recovered/Not Resolved]
  - Clostridium difficile colitis [Recovered/Resolved]
  - Infection [Unknown]
  - Septic shock [Unknown]
  - Acute respiratory distress syndrome [Unknown]
  - Acinetobacter bacteraemia [Unknown]
  - Diarrhoea [Unknown]
  - Thrombocytopenia [Unknown]
  - Urosepsis [Unknown]
  - Blood bilirubin increased [Unknown]
  - Blood alkaline phosphatase increased [Unknown]
  - Pancytopenia [Unknown]
  - Bone marrow failure [Unknown]
